FAERS Safety Report 16918255 (Version 2)
Quarter: 2019Q4

REPORT INFORMATION
  Report Type: Spontaneous
  Country: GB (occurrence: GB)
  Receive Date: 20191015
  Receipt Date: 20191226
  Transmission Date: 20200122
  Serious: Yes (Other)
  Sender: FDA-Public Use
  Company Number: GB-ACCORD-157211

PATIENT
  Age: 3 Year
  Sex: Female
  Weight: 19.96 kg

DRUGS (3)
  1. SALBUTAMOL SULFATE [Concomitant]
     Active Substance: ALBUTEROL SULFATE
  2. CLENIL MODULITE [Concomitant]
     Active Substance: BECLOMETHASONE DIPROPIONATE
  3. MONTELUKAST [Suspect]
     Active Substance: MONTELUKAST SODIUM
     Indication: PNEUMONIA
     Route: 048
     Dates: start: 20190301, end: 20190809

REACTIONS (4)
  - Abnormal weight gain [Recovered/Resolved with Sequelae]
  - Behaviour disorder [Recovered/Resolved with Sequelae]
  - Sleep terror [Recovered/Resolved with Sequelae]
  - Nightmare [Recovered/Resolved with Sequelae]

NARRATIVE: CASE EVENT DATE: 20190301
